FAERS Safety Report 7283669-6 (Version None)
Quarter: 2011Q1

REPORT INFORMATION
  Report Type: 
  Country: None (occurrence: None)
  Receive Date: 20110209
  Receipt Date: 20110128
  Transmission Date: 20110831
  Serious: Yes (Hospitalization)
  Sender: FDA-Public Use
  Company Number: DE-ACTELION-A-US2011-44503

PATIENT

DRUGS (1)
  1. VENTAVIS [Suspect]
     Route: 055

REACTIONS (1)
  - GOUTY ARTHRITIS [None]
